FAERS Safety Report 4395301-X (Version None)
Quarter: 2004Q2

REPORT INFORMATION
  Report Type: 
  Country: None (occurrence: None)
  Receive Date: 20040621
  Receipt Date: 20031024
  Transmission Date: 20050107
  Serious: Yes (Death)
  Sender: FDA-Public Use
  Company Number: USA-2003-0010455

PATIENT
  Age: 19 Year
  Sex: Male
  Weight: 82.4 kg

DRUGS (5)
  1. OXYCONTIN [Suspect]
  2. HYDROCODONE BITARTRATE [Suspect]
  3. ALCOHOL (ETHANOL) [Suspect]
     Dosage: UNK L
  4. CANNABIS (CANNABIS) [Suspect]
  5. PROPOXYPHENE (DEXTROPROPOXYOPHENE) [Suspect]

REACTIONS (3)
  - ACCIDENTAL OVERDOSE [None]
  - DRUG ABUSER [None]
  - MULTIPLE DRUG OVERDOSE [None]
